FAERS Safety Report 4616801-0 (Version None)
Quarter: 2005Q2

REPORT INFORMATION
  Report Type: 
  Country: None (occurrence: None)
  Receive Date: 20050311
  Receipt Date: 20050202
  Transmission Date: 20051028
  Serious: Yes (Death)
  Sender: FDA-Public Use
  Company Number: 2005-00184

PATIENT
  Age: 64 Year
  Sex: Male

DRUGS (3)
  1. VELCADE [Suspect]
     Indication: MULTIPLE MYELOMA
     Dosage: 1.30 MG/M2, 2/WEEK, IV BOLUS
     Route: 040
     Dates: start: 20040101, end: 20041201
  2. COUMADIN [Concomitant]
  3. DEXAMETHASONE [Concomitant]

REACTIONS (6)
  - ANOREXIA [None]
  - ASTHENIA [None]
  - DIARRHOEA [None]
  - DISEASE PROGRESSION [None]
  - HAEMATEMESIS [None]
  - HEPATOMEGALY [None]
